FAERS Safety Report 4958379-8 (Version None)
Quarter: 2006Q1

REPORT INFORMATION
  Report Type: 
  Country: None (occurrence: None)
  Receive Date: 20060329
  Receipt Date: 20060329
  Transmission Date: 20060701
  Serious: Yes (Hospitalization, Disabling)
  Sender: FDA-Public Use
  Company Number: None

PATIENT
  Age: 16 Year
  Sex: Male
  Weight: 93 kg

DRUGS (1)
  1. PHENYTOIN [Suspect]
     Indication: CONVULSION
     Dates: start: 20050330, end: 20050419

REACTIONS (5)
  - BLISTER [None]
  - LETHARGY [None]
  - PYREXIA [None]
  - RASH MACULO-PAPULAR [None]
  - SKIN DISCOLOURATION [None]
